FAERS Safety Report 24212071 (Version 1)
Quarter: 2024Q3

REPORT INFORMATION
  Report Type: Report from Study
  Country: US (occurrence: None)
  Receive Date: 20240815
  Receipt Date: 20240815
  Transmission Date: 20241016
  Serious: Yes (Other)
  Sender: ASTRAZENECA
  Company Number: 2024A142108

PATIENT
  Sex: Female

DRUGS (1)
  1. TAGRISSO [Suspect]
     Active Substance: OSIMERTINIB
     Indication: Lung carcinoma cell type unspecified stage 0
     Route: 048
     Dates: start: 20240520

REACTIONS (7)
  - Lymphadenopathy [Unknown]
  - Drug intolerance [Unknown]
  - Decreased appetite [Unknown]
  - Cough [Unknown]
  - Infection [Unknown]
  - White blood cell count increased [Unknown]
  - Wrong technique in product usage process [Unknown]
